FAERS Safety Report 5558288-X (Version None)
Quarter: 2007Q4

REPORT INFORMATION
  Report Type: 
  Country: None (occurrence: None)
  Receive Date: 20071130
  Receipt Date: 20070905
  Transmission Date: 20080405
  Serious: No
  Sender: FDA-Public Use
  Company Number: US200709001488

PATIENT
  Age: 59 Year
  Sex: Male

DRUGS (7)
  1. BYETTA [Suspect]
     Indication: TYPE 2 DIABETES MELLITUS
     Dosage: 5 UG, 2/D, SUBCUTANEOUS
     Route: 058
     Dates: start: 20070801
  2. HUMALOG [Concomitant]
  3. LANTUS [Concomitant]
  4. ASPIRIN [Concomitant]
  5. TOPROL-XL [Concomitant]
  6. DIOVAN (HYDROCHLOROTHIAZIDE, VALSARTAN) [Concomitant]
  7. CRESTOR [Concomitant]

REACTIONS (4)
  - MEMORY IMPAIRMENT [None]
  - PRURITUS [None]
  - SLEEP TALKING [None]
  - SOMNOLENCE [None]
